FAERS Safety Report 16750472 (Version 1)
Quarter: 2019Q3

REPORT INFORMATION
  Report Type: Spontaneous
  Country: US (occurrence: US)
  Receive Date: 20190828
  Receipt Date: 20190828
  Transmission Date: 20191005
  Serious: No
  Sender: FDA-Public Use
  Company Number: US-PFIZER INC-2019368342

PATIENT
  Age: 64 Year
  Sex: Female
  Weight: 56.7 kg

DRUGS (2)
  1. METOPROLOL. [Concomitant]
     Active Substance: METOPROLOL
     Indication: BLOOD PRESSURE ABNORMAL
     Dosage: UNK
  2. FLAGYL [Suspect]
     Active Substance: METRONIDAZOLE\METRONIDAZOLE HYDROCHLORIDE
     Indication: DIVERTICULITIS
     Dosage: 500 MG, 2X/DAY FOR 10 DAYS
     Dates: start: 201908, end: 201908

REACTIONS (10)
  - Rash [Unknown]
  - Emotional distress [Unknown]
  - Speech disorder [Unknown]
  - Oral mucosal blistering [Unknown]
  - Mouth ulceration [Unknown]
  - Hypersensitivity [Unknown]
  - Dysphagia [Unknown]
  - Eating disorder [Unknown]
  - Stomatitis [Unknown]
  - Oral pain [Unknown]

NARRATIVE: CASE EVENT DATE: 201908
